FAERS Safety Report 7183157-1 (Version None)
Quarter: 2010Q4

REPORT INFORMATION
  Report Type: 
  Country: None (occurrence: None)
  Receive Date: 20101222
  Receipt Date: 20101213
  Transmission Date: 20110411
  Serious: Yes (Hospitalization, Other)
  Sender: FDA-Public Use
  Company Number: GB-JNJFOC-20101003927

PATIENT
  Sex: Male

DRUGS (5)
  1. STELARA [Suspect]
     Indication: PSORIASIS
     Route: 058
  2. VITAMIN B [Concomitant]
     Indication: ILL-DEFINED DISORDER
     Route: 065
  3. LANSOPRAZOLE [Concomitant]
     Indication: ILL-DEFINED DISORDER
     Route: 065
  4. ZOPICLONE [Concomitant]
     Indication: ILL-DEFINED DISORDER
     Route: 065
  5. CALCICHEW [Concomitant]
     Indication: ILL-DEFINED DISORDER
     Route: 065

REACTIONS (4)
  - ABDOMINAL PAIN [None]
  - MASS [None]
  - RADIAL NERVE PALSY [None]
  - VOMITING [None]
